FAERS Safety Report 20652177 (Version 2)
Quarter: 2022Q2

REPORT INFORMATION
  Report Type: Spontaneous
  Country: CN (occurrence: CN)
  Receive Date: 20220330
  Receipt Date: 20220404
  Transmission Date: 20220721
  Serious: Yes (Hospitalization, Other)
  Sender: FDA-Public Use
  Company Number: CN-SA-SAC20220322001538

PATIENT
  Age: 59 Year
  Sex: Male
  Weight: 60 kg

DRUGS (4)
  1. PLAVIX [Suspect]
     Active Substance: CLOPIDOGREL BISULFATE
     Indication: Angina pectoris
     Dosage: 75 MG, QD
     Route: 048
     Dates: start: 20220221, end: 20220227
  2. CAPTOPRIL [Concomitant]
     Active Substance: CAPTOPRIL
     Indication: Hypotension
     Route: 048
  3. ASPIRIN [Concomitant]
     Active Substance: ASPIRIN
     Indication: Angina pectoris
     Route: 048
  4. CINITAPRIDE [Suspect]
     Active Substance: CINITAPRIDE
     Indication: Antiplatelet therapy
     Dosage: 100 MG, QD
     Route: 048
     Dates: start: 20220101, end: 20220227

REACTIONS (2)
  - Abdominal pain upper [Recovering/Resolving]
  - Gastric ulcer perforation [Recovering/Resolving]

NARRATIVE: CASE EVENT DATE: 20220227
